FAERS Safety Report 5268173-9 (Version None)
Quarter: 2007Q1

REPORT INFORMATION
  Report Type: 
  Country: None (occurrence: None)
  Receive Date: 20070316
  Receipt Date: 20070316
  Transmission Date: 20070707
  Serious: Yes (Other)
  Sender: FDA-Public Use
  Company Number: None

PATIENT
  Age: 40 Year
  Sex: Male
  Weight: 108.8633 kg

DRUGS (5)
  1. EFFEXOR [Suspect]
     Indication: ANXIETY
     Dosage: 150  PER DAY  PO
     Route: 048
     Dates: start: 20051124, end: 20070315
  2. EFFEXOR [Suspect]
     Indication: DEPRESSION
     Dosage: 150  PER DAY  PO
     Route: 048
     Dates: start: 20051124, end: 20070315
  3. XANAX [Concomitant]
  4. LEXAPRO [Concomitant]
  5. WELLBUTRIN [Concomitant]

REACTIONS (5)
  - DEPRESSION [None]
  - ERECTILE DYSFUNCTION [None]
  - MALE ORGASMIC DISORDER [None]
  - MANIA [None]
  - PHARMACEUTICAL PRODUCT COMPLAINT [None]
